FAERS Safety Report 10164851 (Version 1)
Quarter: 2014Q2

REPORT INFORMATION
  Report Type: Spontaneous
  Country: US (occurrence: US)
  Receive Date: 20140510
  Receipt Date: 20140510
  Transmission Date: 20141212
  Serious: No
  Sender: FDA-Public Use
  Company Number: US-BRISTOL-MYERS SQUIBB COMPANY-20504791

PATIENT
  Age: 55 Year
  Sex: Female
  Weight: 102.04 kg

DRUGS (1)
  1. BYETTA PEN DISPOSABLE [Suspect]
     Indication: TYPE 2 DIABETES MELLITUS

REACTIONS (4)
  - Underdose [Unknown]
  - Overdose [Unknown]
  - Product quality issue [Unknown]
  - Incorrect product storage [Unknown]
